FAERS Safety Report 16918803 (Version 1)
Quarter: 2019Q4

REPORT INFORMATION
  Report Type: Spontaneous
  Country: US (occurrence: US)
  Receive Date: 20191015
  Receipt Date: 20191015
  Transmission Date: 20200122
  Serious: Yes (Other)
  Sender: FDA-Public Use
  Company Number: US-CURRAX PHARMACEUTICALS LLC-US-2019PER000121

PATIENT
  Sex: Female

DRUGS (1)
  1. PRENATABS RX [Suspect]
     Active Substance: VITAMINS
     Indication: HYPOVITAMINOSIS
     Dosage: 1 TABLET
     Route: 048
     Dates: start: 2005

REACTIONS (1)
  - Breast cancer recurrent [Unknown]
